FAERS Safety Report 6148035-5 (Version None)
Quarter: 2009Q2

REPORT INFORMATION
  Report Type: 
  Country: None (occurrence: None)
  Receive Date: 20090408
  Receipt Date: 20090331
  Transmission Date: 20091009
  Serious: Yes (Hospitalization, Congenital Anomaly)
  Sender: FDA-Public Use
  Company Number: A0679842A

PATIENT
  Sex: Male
  Weight: 2.9 kg

DRUGS (4)
  1. PAXIL [Suspect]
     Indication: ANXIETY
     Dates: start: 20020723, end: 20020922
  2. VITAMIN TAB [Concomitant]
  3. STEROID [Concomitant]
  4. CELESTONE SOLUSPAN [Concomitant]
     Dates: start: 20030519, end: 20030519

REACTIONS (5)
  - BICUSPID AORTIC VALVE [None]
  - CHYLOTHORAX [None]
  - DRUG EXPOSURE DURING PREGNANCY [None]
  - HYDROPS FOETALIS [None]
  - MULTIPLE CONGENITAL ABNORMALITIES [None]
